FAERS Safety Report 11526703 (Version 1)
Quarter: 2015Q3

REPORT INFORMATION
  Report Type: Spontaneous
  Country: US (occurrence: US)
  Receive Date: 20150903
  Receipt Date: 20150903
  Transmission Date: 20151125
  Serious: No
  Sender: FDA-Public Use
  Company Number: US-ELI_LILLY_AND_COMPANY-US201404009889

PATIENT
  Sex: Female

DRUGS (1)
  1. CYMBALTA [Suspect]
     Active Substance: DULOXETINE HYDROCHLORIDE
     Indication: DEPRESSION
     Dosage: UNK
     Route: 048
     Dates: end: 201311

REACTIONS (7)
  - Gastrointestinal disorder [Unknown]
  - Glossodynia [Unknown]
  - Decreased appetite [Unknown]
  - Product tampering [Unknown]
  - Wrong technique in product usage process [Recovered/Resolved]
  - Tongue coated [Unknown]
  - Abdominal pain [Unknown]
